FAERS Safety Report 14218709 (Version 9)
Quarter: 2020Q4

REPORT INFORMATION
  Report Type: Report from Study
  Country: FR (occurrence: FR)
  Receive Date: 20171123
  Receipt Date: 20201030
  Transmission Date: 20210113
  Serious: Yes (Other)
  Sender: FDA-Public Use
  Company Number: FR-BRISTOL-MYERS SQUIBB COMPANY-BMS-2017-104301

PATIENT
  Age: 52 Year
  Sex: Female
  Weight: 53 kg

DRUGS (3)
  1. NIVOLUMAB [Suspect]
     Active Substance: NIVOLUMAB
     Indication: LUNG NEOPLASM MALIGNANT
     Dosage: 150 MILLIGRAM, Q2WK
     Route: 042
     Dates: start: 20170915
  2. IMOVANE [Concomitant]
     Active Substance: ZOPICLONE
     Indication: PRODUCT USED FOR UNKNOWN INDICATION
     Dosage: UNK
     Route: 065
  3. EMLA [Concomitant]
     Active Substance: LIDOCAINE\PRILOCAINE
     Indication: PRODUCT USED FOR UNKNOWN INDICATION
     Dosage: UNK
     Route: 065

REACTIONS (9)
  - Prescribed underdose [Unknown]
  - Hyperkalaemia [Recovered/Resolved]
  - Influenza like illness [Recovered/Resolved]
  - Fall [Unknown]
  - Nasopharyngitis [Recovered/Resolved with Sequelae]
  - Hyperthyroidism [Not Recovered/Not Resolved]
  - Arthralgia [Recovered/Resolved]
  - Dry mouth [Not Recovered/Not Resolved]
  - Scapula fracture [Recovering/Resolving]

NARRATIVE: CASE EVENT DATE: 20171001
